FAERS Safety Report 8491955-7 (Version None)
Quarter: 2012Q3

REPORT INFORMATION
  Report Type: 
  Country: None (occurrence: None)
  Receive Date: 20120706
  Receipt Date: 20120627
  Transmission Date: 20120928
  Serious: Yes (Death, Hospitalization, Other)
  Sender: FDA-Public Use
  Company Number: BE-JNJFOC-20120613039

PATIENT
  Sex: Male
  Weight: 70 kg

DRUGS (20)
  1. NEXIUM [Concomitant]
     Indication: BARRETT'S OESOPHAGUS
     Route: 048
     Dates: start: 20120410
  2. RISPERDAL [Suspect]
     Route: 048
     Dates: start: 20120404, end: 20120406
  3. ASPIRIN [Concomitant]
     Indication: PROPHYLAXIS
     Route: 048
  4. NOVOLOG [Concomitant]
     Indication: TYPE 2 DIABETES MELLITUS
     Dosage: 16 IU IN THE EVENING
     Route: 058
     Dates: start: 20110101, end: 20120405
  5. DAKAR [Concomitant]
     Indication: BARRETT'S OESOPHAGUS
     Route: 065
  6. MIXTARD HUMAN 70/30 [Concomitant]
     Indication: TYPE 2 DIABETES MELLITUS
     Route: 065
  7. RISPERDAL [Suspect]
     Indication: AGITATION
     Route: 048
     Dates: start: 20120320, end: 20120404
  8. ZOCOR [Concomitant]
     Indication: PROPHYLAXIS
     Route: 048
  9. ZESTRIL [Concomitant]
     Route: 048
     Dates: start: 20120319
  10. CEDOCARD [Concomitant]
     Indication: ISCHAEMIC CARDIOMYOPATHY
     Route: 048
     Dates: start: 20050101
  11. ZESTRIL [Concomitant]
     Indication: MICROALBUMINURIA
     Route: 048
     Dates: start: 20120319
  12. PANTOPRAZOLE [Concomitant]
     Indication: BARRETT'S OESOPHAGUS
     Route: 065
  13. RISPERDAL [Suspect]
     Route: 048
     Dates: start: 20120406, end: 20120409
  14. SOTALOL HCL [Interacting]
     Indication: ATRIAL FIBRILLATION
     Route: 048
     Dates: end: 20120416
  15. SERALIN [Interacting]
     Indication: PRODUCT USED FOR UNKNOWN INDICATION
     Route: 048
     Dates: start: 20120324, end: 20120416
  16. ZESTRIL [Concomitant]
     Route: 048
     Dates: start: 20120409
  17. DITROPAN [Concomitant]
     Indication: URINARY INCONTINENCE
     Route: 048
     Dates: start: 20120316, end: 20120403
  18. PANTOPRAZOLE [Concomitant]
     Route: 065
  19. CORUNO [Concomitant]
     Indication: CARDIOVASCULAR DISORDER
     Route: 048
     Dates: start: 20050101, end: 20120104
  20. ZESTRIL [Concomitant]
     Indication: TROPONIN INCREASED
     Route: 048
     Dates: start: 20120409

REACTIONS (9)
  - HYPERGLYCAEMIA [None]
  - INAPPROPRIATE ANTIDIURETIC HORMONE SECRETION [None]
  - EPILEPSY [None]
  - MALAISE [None]
  - ELECTROCARDIOGRAM QT PROLONGED [None]
  - MYOCARDIAL INFARCTION [None]
  - EXTRAPYRAMIDAL DISORDER [None]
  - BRADYCARDIA [None]
  - DRUG INTERACTION [None]
